FAERS Safety Report 24152131 (Version 1)
Quarter: 2024Q3

REPORT INFORMATION
  Report Type: Report from Study
  Country: GT (occurrence: GT)
  Receive Date: 20240730
  Receipt Date: 20240730
  Transmission Date: 20241017
  Serious: Yes (Hospitalization)
  Sender: BAYER
  Company Number: GT-BAYER-2024A105631

PATIENT
  Age: 36 Year
  Sex: Female

DRUGS (1)
  1. STIVARGA [Suspect]
     Active Substance: REGORAFENIB MONOHYDRATE
     Indication: Colorectal cancer metastatic
     Dosage: 160 MG, QD
     Dates: start: 20240628, end: 20240712

REACTIONS (9)
  - Pyrexia [Recovering/Resolving]
  - Chills [Recovering/Resolving]
  - Hypersensitivity [Recovering/Resolving]
  - Pain in extremity [Recovering/Resolving]
  - Feeling hot [Recovering/Resolving]
  - Blister [Recovering/Resolving]
  - Poisoning [None]
  - Stevens-Johnson syndrome [None]
  - Drug reaction with eosinophilia and systemic symptoms [None]

NARRATIVE: CASE EVENT DATE: 20240701
